FAERS Safety Report 15076603 (Version 1)
Quarter: 2018Q2

REPORT INFORMATION
  Report Type: Spontaneous
  Country: HK (occurrence: HK)
  Receive Date: 20180627
  Receipt Date: 20180627
  Transmission Date: 20180711
  Serious: Yes (Hospitalization)
  Sender: FDA-Public Use
  Company Number: HK-ACELLA PHARMACEUTICALS, LLC-2050067

PATIENT
  Age: 35 Year
  Sex: Female

DRUGS (2)
  1. AMITRIPTYLINE HYDROCHLORIDE. [Suspect]
     Active Substance: AMITRIPTYLINE HYDROCHLORIDE
  2. HYDROCODONE BITARTRATE AND CHLORPHENIRAMINE MALEATE [Suspect]
     Active Substance: CHLORPHENIRAMINE MALEATE\HYDROCODONE BITARTRATE
     Indication: OVERDOSE

REACTIONS (4)
  - Cyanosis [Recovered/Resolved]
  - Caesarean section [Recovered/Resolved]
  - Hyporesponsive to stimuli [Recovered/Resolved]
  - Gait disturbance [Recovered/Resolved]
